FAERS Safety Report 22046575 (Version 2)
Quarter: 2023Q2

REPORT INFORMATION
  Report Type: Spontaneous
  Country: BR (occurrence: BR)
  Receive Date: 20230228
  Receipt Date: 20230501
  Transmission Date: 20230721
  Serious: Yes (Hospitalization, Other)
  Sender: FDA-Public Use
  Company Number: BR-NOVOPROD-1024542

PATIENT
  Age: 68 Year
  Sex: Female

DRUGS (1)
  1. NOVORAPID [Suspect]
     Active Substance: INSULIN ASPART
     Indication: Product used for unknown indication
     Dosage: UNK

REACTIONS (5)
  - Blood glucose increased [Unknown]
  - Device loosening [Unknown]
  - Device mechanical issue [Unknown]
  - Device failure [Unknown]
  - Product storage error [Unknown]

NARRATIVE: CASE EVENT DATE: 20230208
